FAERS Safety Report 10403047 (Version 1)
Quarter: 2014Q3

REPORT INFORMATION
  Report Type: Spontaneous
  Country: US (occurrence: None)
  Receive Date: 20140821
  Receipt Date: 20140821
  Transmission Date: 20150326
  Serious: Yes (Other)
  Sender: FDA-Public Use
  Company Number: None

PATIENT
  Age: 59 Year
  Sex: Male

DRUGS (2)
  1. SUTENT [Suspect]
     Active Substance: SUNITINIB MALATE
     Indication: PANCREATIC CARCINOMA
     Route: 048
     Dates: start: 20140517, end: 20140818
  2. SUTENT [Suspect]
     Active Substance: SUNITINIB MALATE
     Dosage: TOTAL DOSE: 37.5 MG

REACTIONS (1)
  - Treatment failure [None]

NARRATIVE: CASE EVENT DATE: 20140818
